FAERS Safety Report 22947467 (Version 7)
Quarter: 2025Q4

REPORT INFORMATION
  Report Type: Spontaneous
  Country: PA (occurrence: PA)
  Receive Date: 20230915
  Receipt Date: 20251128
  Transmission Date: 20260118
  Serious: Yes (Hospitalization, Disabling, Other)
  Sender: SANDOZ
  Company Number: PA-002147023-NVSC2022PA190119

PATIENT
  Age: 54 Year
  Sex: Female
  Weight: 156 kg

DRUGS (12)
  1. ANASTROZOLE [Suspect]
     Active Substance: ANASTROZOLE
     Indication: Product used for unknown indication
     Dosage: 3 DOSAGE FORM, QD
     Route: 065
  2. KISQALI [Suspect]
     Active Substance: RIBOCICLIB SUCCINATE
     Dosage: 600 MG, TID
     Route: 048
     Dates: start: 20210301
  3. KISQALI [Suspect]
     Active Substance: RIBOCICLIB SUCCINATE
     Dosage: 3 DOSAGE FORM, QD
     Route: 065
  4. KISQALI [Suspect]
     Active Substance: RIBOCICLIB SUCCINATE
     Indication: Breast cancer metastatic
     Dosage: 600 MG, QD
     Route: 048
     Dates: start: 20210127
  5. KISQALI [Suspect]
     Active Substance: RIBOCICLIB SUCCINATE
     Dosage: 600 MG, QD
     Route: 048
     Dates: start: 202103
  6. KISQALI [Suspect]
     Active Substance: RIBOCICLIB SUCCINATE
     Dosage: 600 MG, QD (3 DOSAGE FORMS)
     Route: 048
     Dates: start: 2022
  7. KISQALI [Suspect]
     Active Substance: RIBOCICLIB SUCCINATE
     Dosage: 600 MG, QD (3 DOSAGE FORMS)
     Route: 048
     Dates: end: 202508
  8. KISQALI [Suspect]
     Active Substance: RIBOCICLIB SUCCINATE
     Indication: Metastases to bone
     Dosage: 600 MG, QD (BETWEEN 2020 TO 2021)
     Route: 048
  9. KISQALI [Suspect]
     Active Substance: RIBOCICLIB SUCCINATE
     Dosage: 600 MG, QD
     Route: 048
     Dates: end: 202511
  10. KISQALI [Suspect]
     Active Substance: RIBOCICLIB SUCCINATE
     Dosage: UNK
     Route: 048
     Dates: start: 20250620
  11. KISQALI [Suspect]
     Active Substance: RIBOCICLIB SUCCINATE
     Dosage: UNK (BETWEEN AUG AND SEP 2025)
     Route: 065
  12. ZOMETA [Suspect]
     Active Substance: ZOLEDRONIC ACID
     Indication: Metastases to bone
     Dosage: UNK
     Route: 065

REACTIONS (29)
  - Blood creatinine increased [Recovering/Resolving]
  - Feeling abnormal [Not Recovered/Not Resolved]
  - Haemoglobin decreased [Not Recovered/Not Resolved]
  - Metastases to spine [Unknown]
  - Metastases to bone [Unknown]
  - Blindness [Not Recovered/Not Resolved]
  - Renal disorder [Not Recovered/Not Resolved]
  - Heat illness [Unknown]
  - Abdominal discomfort [Unknown]
  - Blood pressure increased [Recovering/Resolving]
  - Haemoglobin increased [Unknown]
  - Fluid retention [Unknown]
  - Weight increased [Unknown]
  - Eye swelling [Unknown]
  - Inflammation [Unknown]
  - Blood glucose increased [Unknown]
  - Hypoaesthesia [Unknown]
  - Swelling [Unknown]
  - Back pain [Recovering/Resolving]
  - Drug intolerance [Unknown]
  - Dizziness [Recovering/Resolving]
  - Pain [Not Recovered/Not Resolved]
  - Memory impairment [Not Recovered/Not Resolved]
  - Arthralgia [Unknown]
  - Malaise [Unknown]
  - Vomiting [Not Recovered/Not Resolved]
  - Product use in unapproved indication [Unknown]
  - Off label use [Unknown]
  - Wrong technique in product usage process [Not Recovered/Not Resolved]

NARRATIVE: CASE EVENT DATE: 20230908
